FAERS Safety Report 12137193 (Version 1)
Quarter: 2016Q1

REPORT INFORMATION
  Report Type: Spontaneous
  Country: US (occurrence: US)
  Receive Date: 20160302
  Receipt Date: 20160302
  Transmission Date: 20160526
  Serious: Yes (Other)
  Sender: FDA-Public Use
  Company Number: US-INSYS THERAPEUTICS, INC-INS201509-000380

PATIENT
  Age: 56 Year
  Sex: Male

DRUGS (13)
  1. SUBSYS [Suspect]
     Active Substance: FENTANYL
     Indication: DISLOCATION OF STERNUM
     Dates: start: 20150829, end: 20150831
  2. SUBSYS [Suspect]
     Active Substance: FENTANYL
     Indication: VASCULAR GRAFT
  3. SUBSYS [Suspect]
     Active Substance: FENTANYL
     Indication: OBSESSIVE-COMPULSIVE PERSONALITY DISORDER
  4. CARVEDILOL. [Concomitant]
     Active Substance: CARVEDILOL
     Indication: CARDIAC DISORDER
  5. ISOSORBIDE MONONITRATE. [Concomitant]
     Active Substance: ISOSORBIDE MONONITRATE
     Indication: CARDIAC DISORDER
  6. INSULIN [Concomitant]
     Active Substance: INSULIN NOS
     Indication: DIABETES MELLITUS
  7. NITROGLYCERINE [Concomitant]
     Active Substance: NITROGLYCERIN
     Indication: CARDIAC DISORDER
  8. SUBSYS [Suspect]
     Active Substance: FENTANYL
     Indication: PAIN IN EXTREMITY
  9. GABAPENTIN. [Concomitant]
     Active Substance: GABAPENTIN
  10. SUBSYS [Suspect]
     Active Substance: FENTANYL
     Indication: BACK DISORDER
  11. SUBSYS [Suspect]
     Active Substance: FENTANYL
     Indication: SPINAL CORD DISORDER
  12. LISINOPRIL. [Concomitant]
     Active Substance: LISINOPRIL
     Indication: BLOOD PRESSURE ABNORMAL
  13. SUBSYS [Suspect]
     Active Substance: FENTANYL
     Indication: SKIN DISCOLOURATION

REACTIONS (8)
  - Migraine [Recovering/Resolving]
  - Chest pain [Recovering/Resolving]
  - Respiratory depression [Recovering/Resolving]
  - Anxiety [Recovering/Resolving]
  - Off label use [Unknown]
  - Hypopnoea [Recovering/Resolving]
  - Nausea [Recovering/Resolving]
  - Palpitations [Recovered/Resolved]

NARRATIVE: CASE EVENT DATE: 20150829
